FAERS Safety Report 22253421 (Version 2)
Quarter: 2023Q2

REPORT INFORMATION
  Report Type: Spontaneous
  Country: US (occurrence: None)
  Receive Date: 20230426
  Receipt Date: 20230609
  Transmission Date: 20230722
  Serious: No
  Sender: FDA-Public Use
  Company Number: 2023A094606

PATIENT
  Age: 66 Year
  Sex: Female

DRUGS (3)
  1. CALQUENCE [Suspect]
     Active Substance: ACALABRUTINIB
     Route: 048
     Dates: end: 2021
  2. CALQUENCE [Suspect]
     Active Substance: ACALABRUTINIB
     Dosage: DECREASED THE DOSE TO ONCE PER DAY
     Route: 048
     Dates: end: 2021
  3. CALQUENCE [Suspect]
     Active Substance: ACALABRUTINIB
     Route: 048
     Dates: start: 202302

REACTIONS (6)
  - Rash pruritic [Recovered/Resolved]
  - Insomnia [Recovered/Resolved]
  - Influenza [Not Recovered/Not Resolved]
  - Pain [Not Recovered/Not Resolved]
  - Fatigue [Not Recovered/Not Resolved]
  - Asthenia [Not Recovered/Not Resolved]

NARRATIVE: CASE EVENT DATE: 20210101
